FAERS Safety Report 4923593-4 (Version None)
Quarter: 2006Q1

REPORT INFORMATION
  Report Type: 
  Country: None (occurrence: None)
  Receive Date: 20060221
  Receipt Date: 20060213
  Transmission Date: 20060701
  Serious: Yes (Other)
  Sender: FDA-Public Use
  Company Number: 2006021934

PATIENT
  Age: 77 Year
  Sex: Female
  Weight: 57.6068 kg

DRUGS (4)
  1. PRAZOSIN GITS [Suspect]
     Indication: HYPERTENSION
     Dosage: 4 MG (2 MG,2 IN 1 D),ORAL
     Route: 048
     Dates: start: 19850101
  2. SERTRALINE [Suspect]
     Indication: ILL-DEFINED DISORDER
     Dosage: 100 MG (100 MG,1 IN 1 D),ORAL
     Route: 048
  3. TENORMIN [Concomitant]
  4. ATIVAN [Concomitant]

REACTIONS (3)
  - ALOPECIA [None]
  - LUNG NEOPLASM MALIGNANT [None]
  - PULMONARY OEDEMA [None]
